FAERS Safety Report 7712510-X (Version None)
Quarter: 2011Q3

REPORT INFORMATION
  Report Type: 
  Country: None (occurrence: None)
  Receive Date: 20110822
  Receipt Date: 20110816
  Transmission Date: 20111222
  Serious: Yes (Death)
  Sender: FDA-Public Use
  Company Number: 2011SP038814

PATIENT
  Age: 9 Year
  Sex: Male

DRUGS (12)
  1. ZYPREXA [Suspect]
     Dosage: 2.5 MG ; 2.5 MG
  2. CLONIDINE [Suspect]
     Indication: PRODUCT USED FOR UNKNOWN INDICATION
     Dosage: 25 MCG;QD ; 50 MCG;QD
  3. CLONIDINE [Suspect]
     Indication: PRODUCT USED FOR UNKNOWN INDICATION
     Dosage: 25 MCG;QD ; 50 MCG;QD
  4. APO-SERTRALINE (NO PREF. NAME) [Suspect]
     Indication: PRODUCT USED FOR UNKNOWN INDICATION
     Dosage: 20 MG;QD ; 20 MG;QD
  5. APO-SERTRALINE (NO PREF. NAME) [Suspect]
     Indication: PRODUCT USED FOR UNKNOWN INDICATION
     Dosage: 20 MG;QD ; 20 MG;QD
  6. STRATTERA [Suspect]
     Indication: PRODUCT USED FOR UNKNOWN INDICATION
     Dosage: 40 MG
  7. APO-HALOPERIDOL (HALOPERIDOL) [Suspect]
     Dosage: 2 MG;QD
  8. BIPHENTIN (METHYLPHENIDATE HYDROCHLORIDE) [Suspect]
     Indication: PRODUCT USED FOR UNKNOWN INDICATION
     Dosage: 40 MG;QD
  9. FLOVENT HFA (FLUTICASONE PROPIONATE) [Suspect]
     Indication: PRODUCT USED FOR UNKNOWN INDICATION
     Dosage: 250 MCG;INH
     Route: 055
  10. RATIO-SALBUTAMOL HFA (SALBUTAMOL SULFATE) [Suspect]
     Indication: PRODUCT USED FOR UNKNOWN INDICATION
     Dosage: 200 MCG;INH
     Route: 055
  11. NASONEX [Suspect]
     Dosage: 100 MCG;QD;NAS
     Route: 045
  12. SEROQUEL [Suspect]
     Indication: PRODUCT USED FOR UNKNOWN INDICATION
     Dosage: 50 MG

REACTIONS (6)
  - GASTRIC DILATATION [None]
  - DIZZINESS [None]
  - WEIGHT INCREASED [None]
  - EYE MOVEMENT DISORDER [None]
  - DYSPNOEA [None]
  - DYSSTASIA [None]
